FAERS Safety Report 4322461-9 (Version None)
Quarter: 2004Q1

REPORT INFORMATION
  Report Type: 
  Country: None (occurrence: None)
  Receive Date: 20040323
  Receipt Date: 20040323
  Transmission Date: 20041129
  Serious: Yes (Life-Threatening)
  Sender: FDA-Public Use
  Company Number: None

PATIENT
  Age: 29 Year
  Sex: Female
  Weight: 49.8957 kg

DRUGS (2)
  1. ZOLOFT [Suspect]
     Indication: PANIC ATTACK
     Dosage: 1 PILL EACH MORNI ORAL
     Route: 048
     Dates: start: 20020310, end: 20021113
  2. PAXIL [Suspect]
     Dosage: 1 PILL EACH EVENI ORAL
     Route: 048
     Dates: start: 20040109, end: 20040317

REACTIONS (9)
  - ABNORMAL BEHAVIOUR [None]
  - CRYING [None]
  - DEPRESSION [None]
  - FEELING ABNORMAL [None]
  - FEELING OF DESPAIR [None]
  - FEELINGS OF WORTHLESSNESS [None]
  - IMPAIRED WORK ABILITY [None]
  - INTENTIONAL SELF-INJURY [None]
  - SOCIAL AVOIDANT BEHAVIOUR [None]
